FAERS Safety Report 10213281 (Version 1)
Quarter: 2014Q2

REPORT INFORMATION
  Report Type: Spontaneous
  Country: US (occurrence: None)
  Receive Date: 20140529
  Receipt Date: 20140529
  Transmission Date: 20141212
  Serious: Yes (Hospitalization)
  Sender: FDA-Public Use
  Company Number: 2014P1004606

PATIENT
  Sex: Female

DRUGS (2)
  1. PLAQUENIL [Suspect]
  2. METHOTREXATE [Suspect]

REACTIONS (8)
  - Pain [None]
  - Gastrointestinal disorder [None]
  - Renal failure [None]
  - Diarrhoea [None]
  - Electrolyte imbalance [None]
  - Stomatitis [None]
  - White blood cell count decreased [None]
  - Asthenia [None]
